FAERS Safety Report 5466693-5 (Version None)
Quarter: 2007Q3

REPORT INFORMATION
  Report Type: 
  Country: None (occurrence: None)
  Receive Date: 20070925
  Receipt Date: 20070920
  Transmission Date: 20080115
  Serious: Yes (Hospitalization)
  Sender: FDA-Public Use
  Company Number: CA-ASTRAZENECA-2007UW22252

PATIENT
  Age: 838 Month
  Sex: Male
  Weight: 90 kg

DRUGS (9)
  1. CRESTOR [Suspect]
     Indication: BLOOD CHOLESTEROL
     Route: 048
     Dates: start: 20070301
  2. PREVACID [Concomitant]
     Indication: GASTRIC DISORDER
     Route: 048
     Dates: start: 20070701
  3. AVAPRO [Concomitant]
     Indication: BLOOD PRESSURE
     Route: 048
     Dates: start: 19970101
  4. SYNTHROID [Concomitant]
     Indication: THYROID DISORDER
     Route: 048
     Dates: start: 20000101
  5. PLAVIX [Concomitant]
     Indication: CARDIAC DISORDER
     Route: 048
  6. METFORMIN HCL [Concomitant]
     Indication: DIABETES MELLITUS
     Route: 048
     Dates: start: 19970101
  7. TIAZAC [Concomitant]
     Indication: BLOOD PRESSURE
     Route: 048
  8. VESICARE [Concomitant]
     Indication: BLADDER DISORDER
     Route: 048
  9. FUROSEMIDE [Concomitant]
     Indication: DIURETIC THERAPY
     Route: 048

REACTIONS (1)
  - GASTRIC HAEMORRHAGE [None]
